FAERS Safety Report 4331899-5 (Version None)
Quarter: 2004Q2

REPORT INFORMATION
  Report Type: 
  Country: None (occurrence: None)
  Receive Date: 20040405
  Receipt Date: 20020924
  Transmission Date: 20050107
  Serious: No
  Sender: FDA-Public Use
  Company Number: US-GLAXOSMITHKLINE-A0381525A

PATIENT
  Age: 75 Year
  Sex: Female

DRUGS (2)
  1. SEREVENT [Suspect]
     Dosage: 2PUFF TWICE PER DAY
     Route: 055
     Dates: start: 20000101
  2. CLIMARA [Concomitant]
     Route: 062

REACTIONS (2)
  - HEART RATE INCREASED [None]
  - WEIGHT INCREASED [None]
